FAERS Safety Report 4399170-3 (Version None)
Quarter: 2004Q3

REPORT INFORMATION
  Report Type: 
  Country: None (occurrence: None)
  Receive Date: 20040715
  Receipt Date: 20040715
  Transmission Date: 20050211
  Serious: No
  Sender: FDA-Public Use
  Company Number: None

PATIENT
  Sex: Female
  Weight: 85.7298 kg

DRUGS (2)
  1. VASOTEC [Suspect]
     Indication: CARDIAC FAILURE CONGESTIVE
     Dosage: 20 MG 1 PO BID
     Route: 048
  2. VASOTEC [Suspect]
     Indication: CARDIOMYOPATHY
     Dosage: 20 MG 1 PO BID
     Route: 048

REACTIONS (2)
  - ADVERSE DRUG REACTION [None]
  - PHARMACEUTICAL PRODUCT COMPLAINT [None]
